FAERS Safety Report 5158497-8 (Version None)
Quarter: 2006Q4

REPORT INFORMATION
  Report Type: 
  Country: None (occurrence: None)
  Receive Date: 20061117
  Receipt Date: 20061109
  Transmission Date: 20070319
  Serious: Yes (Life-Threatening, Hospitalization, Disabling, Other)
  Sender: FDA-Public Use
  Company Number: FR9381823DEC2002

PATIENT
  Age: 65 Year
  Sex: Female

DRUGS (5)
  1. RAPAMUNE [Suspect]
     Indication: PROPHYLAXIS AGAINST TRANSPLANT REJECTION
     Dosage: 15 MG DAILY; 10 MG DAILY; 5 MG DAILY; 1 MG DAILY
     Route: 048
     Dates: start: 20021128, end: 20020101
  2. RAPAMUNE [Suspect]
     Indication: PROPHYLAXIS AGAINST TRANSPLANT REJECTION
     Dosage: 15 MG DAILY; 10 MG DAILY; 5 MG DAILY; 1 MG DAILY
     Route: 048
     Dates: start: 20021103, end: 20021104
  3. RAPAMUNE [Suspect]
     Indication: PROPHYLAXIS AGAINST TRANSPLANT REJECTION
     Dosage: 15 MG DAILY; 10 MG DAILY; 5 MG DAILY; 1 MG DAILY
     Route: 048
     Dates: start: 20021105, end: 20021127
  4. RAPAMUNE [Suspect]
     Indication: PROPHYLAXIS AGAINST TRANSPLANT REJECTION
     Dosage: 15 MG DAILY; 10 MG DAILY; 5 MG DAILY; 1 MG DAILY
     Route: 048
     Dates: start: 20021217, end: 20021219
  5. CELLCEPT (MYCOPHANOLATE MOFETIL) [Suspect]
     Indication: PROPHYLAXIS AGAINST TRANSPLANT REJECTION
     Dosage: 500 MG DAILY
     Route: 048
     Dates: start: 20021218, end: 20021219

REACTIONS (9)
  - ATRIAL FIBRILLATION [None]
  - DEPRESSED LEVEL OF CONSCIOUSNESS [None]
  - ERYTHROBLASTOSIS [None]
  - GASTROINTESTINAL HAEMORRHAGE [None]
  - GENERAL PHYSICAL HEALTH DETERIORATION [None]
  - LUNG INFECTION [None]
  - PERINEPHRIC EFFUSION [None]
  - POLYNEUROPATHY [None]
  - QUADRIPLEGIA [None]
